FAERS Safety Report 6155215-1 (Version None)
Quarter: 2009Q2

REPORT INFORMATION
  Report Type: 
  Country: None (occurrence: None)
  Receive Date: 20090410
  Receipt Date: 20090410
  Transmission Date: 20091009
  Serious: Yes (Life-Threatening, Hospitalization)
  Sender: FDA-Public Use
  Company Number: None

PATIENT
  Age: 86 Year
  Sex: Female

DRUGS (1)
  1. PENTAMIDINE ISETHIONATE [Suspect]
     Indication: ANTIFUNGAL PROPHYLAXIS
     Dosage: 300 MG/ 6 ML ONCE INHAL ONE 15 MINUTE  INHALATION
     Route: 055

REACTIONS (2)
  - RESPIRATORY FAILURE [None]
  - UNRESPONSIVE TO STIMULI [None]
